FAERS Safety Report 10617231 (Version 2)
Quarter: 2015Q1

REPORT INFORMATION
  Report Type: Spontaneous
  Country: US (occurrence: US)
  Receive Date: 20141201
  Receipt Date: 20150206
  Transmission Date: 20150720
  Serious: Yes (Hospitalization, Disabling)
  Sender: FDA-Public Use
  Company Number: US-BAYER-2014-175427

PATIENT
  Age: 22 Year
  Sex: Female
  Weight: 52.61 kg

DRUGS (1)
  1. MIRENA [Suspect]
     Active Substance: LEVONORGESTREL
     Indication: CONTRACEPTION
     Dosage: 20 MCG/24HR, CONT
     Route: 015
     Dates: start: 20080430, end: 20090121

REACTIONS (7)
  - Device dislocation [None]
  - Pain [None]
  - General physical health deterioration [None]
  - Deformity [None]
  - Uterine perforation [None]
  - Injury [None]
  - Condition aggravated [None]

NARRATIVE: CASE EVENT DATE: 20090105
